FAERS Safety Report 19765300 (Version 3)
Quarter: 2021Q3

REPORT INFORMATION
  Report Type: Spontaneous
  Country: CN (occurrence: CN)
  Receive Date: 20210830
  Receipt Date: 20210929
  Transmission Date: 20211014
  Serious: Yes (Other)
  Sender: FDA-Public Use
  Company Number: CN-PFIZER INC-202101056705

PATIENT

DRUGS (2)
  1. ENDOSTAR [Suspect]
     Active Substance: ENDOSTATIN
     Dosage: UNK
  2. XALKORI [Suspect]
     Active Substance: CRIZOTINIB
     Indication: LUNG ADENOCARCINOMA
     Dosage: UNK

REACTIONS (2)
  - Condition aggravated [Unknown]
  - Pericardial effusion [Unknown]
